FAERS Safety Report 12320170 (Version 4)
Quarter: 2017Q1

REPORT INFORMATION
  Report Type: Report from Study
  Country: US (occurrence: US)
  Receive Date: 20160429
  Receipt Date: 20170111
  Transmission Date: 20170428
  Serious: Yes (Hospitalization)
  Sender: FDA-Public Use
  Company Number: US-BIOGEN-2016BI00229275

PATIENT
  Age: 31 Year
  Sex: Male

DRUGS (2)
  1. PLEGRIDY [Suspect]
     Active Substance: PEGINTERFERON BETA-1A
     Indication: MULTIPLE SCLEROSIS
     Route: 058
     Dates: start: 20150731
  2. PLEGRIDY [Suspect]
     Active Substance: PEGINTERFERON BETA-1A
     Route: 058
     Dates: start: 20150827

REACTIONS (8)
  - Cerebral thrombosis [Recovered/Resolved]
  - Coma [Recovered/Resolved]
  - Cognitive disorder [Recovered/Resolved]
  - Road traffic accident [Recovered/Resolved]
  - Ligament rupture [Recovered/Resolved]
  - Craniocerebral injury [Recovered/Resolved]
  - Scar [Not Recovered/Not Resolved]
  - Amnesia [Recovered/Resolved]

NARRATIVE: CASE EVENT DATE: 201604
